FAERS Safety Report 9083762 (Version 1)
Quarter: 2013Q1

REPORT INFORMATION
  Report Type: Spontaneous
  Country: GB (occurrence: GB)
  Receive Date: 20130130
  Receipt Date: 20130130
  Transmission Date: 20140127
  Serious: Yes (Other)
  Sender: FDA-Public Use
  Company Number: GB-PFIZER INC-2013035964

PATIENT
  Age: 46 Year
  Sex: Male

DRUGS (3)
  1. PHENYTOIN SODIUM [Suspect]
     Indication: EPILEPSY
     Dosage: 500 MG, 1X/DAY
     Route: 048
     Dates: start: 20121214, end: 20121228
  2. CLONAZEPAM [Concomitant]
  3. EPANUTIN [Concomitant]
     Indication: EPILEPSY

REACTIONS (9)
  - Blood urine present [Recovered/Resolved]
  - Chromaturia [Unknown]
  - Arthralgia [Recovered/Resolved]
  - Somnolence [Recovered/Resolved with Sequelae]
  - Hypersomnia [Recovered/Resolved with Sequelae]
  - Dehydration [Unknown]
  - Dysgeusia [Unknown]
  - Drug dispensing error [Unknown]
  - Product substitution issue [Unknown]
